FAERS Safety Report 12324204 (Version 1)
Quarter: 2016Q2

REPORT INFORMATION
  Report Type: Spontaneous
  Country: US (occurrence: US)
  Receive Date: 20160502
  Receipt Date: 20160502
  Transmission Date: 20160815
  Serious: No
  Sender: FDA-Public Use
  Company Number: US-ABBVIE-15P-163-1515127-00

PATIENT
  Age: 60 Year
  Sex: Male

DRUGS (3)
  1. ANDROGEL [Suspect]
     Active Substance: TESTOSTERONE
     Indication: HYPOGONADISM
     Dosage: 1 PUMP DAILY
     Route: 061
     Dates: start: 201508, end: 201508
  2. ANDROGEL [Suspect]
     Active Substance: TESTOSTERONE
     Indication: HYPOGONADISM
     Dosage: TWO  5 GRAM PACKETS DAILY
     Route: 061
     Dates: start: 2012, end: 201508
  3. ANDROGEL [Suspect]
     Active Substance: TESTOSTERONE
     Dosage: TWO 5 GRAM PACKETS DAILY
     Route: 061
     Dates: start: 201509

REACTIONS (2)
  - Acne [Recovered/Resolved]
  - Acne [Recovering/Resolving]

NARRATIVE: CASE EVENT DATE: 201508
